FAERS Safety Report 19255506 (Version 2)
Quarter: 2021Q3

REPORT INFORMATION
  Report Type: Spontaneous
  Country: US (occurrence: US)
  Receive Date: 20210514
  Receipt Date: 20210702
  Transmission Date: 20211014
  Serious: No
  Sender: FDA-Public Use
  Company Number: US-ASTRAZENECA-2021A354013

PATIENT
  Sex: Male
  Weight: 113.4 kg

DRUGS (2)
  1. PULMICORT FLEXHALER [Suspect]
     Active Substance: BUDESONIDE
     Indication: RESPIRATORY DISORDER
     Dosage: 180 MCG 2 PUFFS DAILY
     Route: 055
     Dates: start: 20210323
  2. MODERNA COVID?19 VACCINE [Concomitant]
     Active Substance: CX-024414
     Indication: COVID-19
     Route: 065

REACTIONS (3)
  - Device delivery system issue [Unknown]
  - Illness [Unknown]
  - Malaise [Unknown]
